FAERS Safety Report 11583026 (Version 1)
Quarter: 2015Q3

REPORT INFORMATION
  Report Type: Spontaneous
  Country: US (occurrence: None)
  Receive Date: 20150930
  Receipt Date: 20150930
  Transmission Date: 20151125
  Serious: Yes (Other)
  Sender: FDA-Public Use
  Company Number: None

PATIENT
  Age: 64 Year
  Sex: Female
  Weight: 66.68 kg

DRUGS (7)
  1. CALCIUM [Concomitant]
     Active Substance: CALCIUM
  2. LEVOTHYROXINE. [Concomitant]
     Active Substance: LEVOTHYROXINE
  3. CELEBREX [Concomitant]
     Active Substance: CELECOXIB
  4. LISINOPRIL. [Concomitant]
     Active Substance: LISINOPRIL
  5. VITAMINS [Concomitant]
     Active Substance: VITAMINS
  6. NAPROXEN 500 MG [Suspect]
     Active Substance: NAPROXEN
     Indication: LIGAMENT SPRAIN
     Route: 048
  7. PROBIOTICS [Concomitant]
     Active Substance: PROBIOTICS NOS

REACTIONS (7)
  - Paraesthesia oral [None]
  - Heart rate increased [None]
  - Burning sensation [None]
  - Drug hypersensitivity [None]
  - Mouth swelling [None]
  - Diarrhoea [None]
  - Angioedema [None]

NARRATIVE: CASE EVENT DATE: 20150925
